FAERS Safety Report 8318416-X (Version None)
Quarter: 2012Q2

REPORT INFORMATION
  Report Type: 
  Country: None (occurrence: None)
  Receive Date: 20120427
  Receipt Date: 20120418
  Transmission Date: 20120825
  Serious: Yes (Other)
  Sender: FDA-Public Use
  Company Number: AU-ASTRAZENECA-2012SE25688

PATIENT
  Age: 70 Year
  Sex: Female

DRUGS (3)
  1. SYMBICORT [Suspect]
     Indication: ASTHMA
     Dosage: 200/6, UNKNOWN FREQUENCY
     Route: 055
  2. ALPHAPRIL [Concomitant]
     Indication: BLOOD PRESSURE
  3. XALATAN [Concomitant]
     Indication: GLAUCOMA
     Dosage: UNKNOWN DOSE AT NIGHT

REACTIONS (8)
  - MALAISE [None]
  - TREMOR [None]
  - GLAUCOMA [None]
  - THYROID PAIN [None]
  - HEPATIC PAIN [None]
  - MOOD ALTERED [None]
  - NAUSEA [None]
  - BLOOD PRESSURE INCREASED [None]
